FAERS Safety Report 6940703-8 (Version None)
Quarter: 2010Q3

REPORT INFORMATION
  Report Type: 
  Country: None (occurrence: None)
  Receive Date: 20100825
  Receipt Date: 20100816
  Transmission Date: 20110219
  Serious: Yes (Other)
  Sender: FDA-Public Use
  Company Number: MA-ROCHE-721549

PATIENT
  Sex: Female
  Weight: 53 kg

DRUGS (2)
  1. TOCILIZUMAB [Suspect]
     Indication: RHEUMATOID ARTHRITIS
     Dosage: LAST DOSE PRIOR TO SAE: 11 JUNE 2010. THERAPY PERMANENTLY DISCONTINUED ON 06 JULY 10.
     Route: 042
     Dates: start: 20100514, end: 20100706
  2. ARAVA [Concomitant]
     Dates: start: 20091201, end: 20100706

REACTIONS (1)
  - CYTOLYTIC HEPATITIS [None]
